FAERS Safety Report 8104592-0 (Version None)
Quarter: 2012Q1

REPORT INFORMATION
  Report Type: 
  Country: None (occurrence: None)
  Receive Date: 20120201
  Receipt Date: 20120117
  Transmission Date: 20120608
  Serious: Yes (Hospitalization)
  Sender: FDA-Public Use
  Company Number: US-WATSON-2012-01329

PATIENT
  Age: 38 Year
  Sex: Female

DRUGS (3)
  1. NORCO [Suspect]
     Indication: ABDOMINAL PAIN
     Dosage: OCCASIONAL
  2. RANITIDINE HYDROCHLORIDE [Suspect]
     Indication: GASTROOESOPHAGEAL REFLUX DISEASE
     Dosage: 150 MG, DAILY
  3. UNSPECIFIED HERBAL [Suspect]
     Indication: WEIGHT DECREASED
     Dosage: 500 MG, DAILY X 5 DAYS A WEEK

REACTIONS (1)
  - NEPHROPATHY [None]
